FAERS Safety Report 4285375-9 (Version None)
Quarter: 2004Q1

REPORT INFORMATION
  Report Type: 
  Country: None (occurrence: None)
  Receive Date: 20040202
  Receipt Date: 20040122
  Transmission Date: 20041129
  Serious: Yes (Hospitalization, Other)
  Sender: FDA-Public Use
  Company Number: 200410054BNE

PATIENT
  Age: 78 Year
  Sex: Female

DRUGS (14)
  1. ASPIRIN [Suspect]
     Indication: ANTICOAGULANT THERAPY
     Dosage: 75 MG, TOTAL DAILY, ORAL
     Route: 048
     Dates: end: 20031001
  2. ASPIRIN [Suspect]
     Indication: ANTICOAGULANT THERAPY
     Dosage: 75 MG, TOTAL DAILY, ORAL
     Route: 048
     Dates: start: 20031221, end: 20040103
  3. AMILORIDE [Concomitant]
  4. FRUSEMIDE [Concomitant]
  5. NICORANDIL [Concomitant]
  6. AMLODIPINE [Concomitant]
  7. ISOSORBIDE MONONITRATE [Concomitant]
  8. SPIRONOLACTONE [Concomitant]
  9. DIGOXIN [Concomitant]
  10. FERROUS SULPHATE ANHYDROUS [Concomitant]
  11. LANSOPRAZOLE [Concomitant]
  12. AMOXICILLIN AND CLAVULANATE POTASSIUM [Concomitant]
  13. CLARITHROMYCIN [Concomitant]
  14. CITALOPRAM [Concomitant]

REACTIONS (6)
  - EPISTAXIS [None]
  - GASTRITIS EROSIVE [None]
  - HAEMATEMESIS [None]
  - LETHARGY [None]
  - LOWER RESPIRATORY TRACT INFECTION [None]
  - NAUSEA [None]
